FAERS Safety Report 15244552 (Version 1)
Quarter: 2018Q3

REPORT INFORMATION
  Report Type: Spontaneous
  Country: US (occurrence: US)
  Receive Date: 20180712
  Receipt Date: 20180712
  Transmission Date: 20181010
  Serious: Yes (Hospitalization)
  Sender: FDA-Public Use
  Company Number: None

PATIENT
  Age: 40 Year
  Sex: Male
  Weight: 88.3 kg

DRUGS (4)
  1. ETOPOSIDE (VP?16) [Suspect]
     Active Substance: ETOPOSIDE
     Dates: end: 20180627
  2. CARBOPLATIN. [Suspect]
     Active Substance: CARBOPLATIN
     Dates: end: 20180627
  3. TAXOL [Suspect]
     Active Substance: PACLITAXEL
     Dates: end: 20180608
  4. IFOSFAMIDE. [Suspect]
     Active Substance: IFOSFAMIDE
     Dates: end: 20180610

REACTIONS (4)
  - Respiratory syncytial virus infection [None]
  - Stem cell transplant [None]
  - Febrile neutropenia [None]
  - Enterocolitis [None]

NARRATIVE: CASE EVENT DATE: 20180629
